FAERS Safety Report 7659021 (Version 10)
Quarter: 2013Q3

REPORT INFORMATION
  Report Type: Report from Study
  Country: US (occurrence: US)
  Receive Date: 20101107
  Receipt Date: 20130705
  Transmission Date: 20140515
  Serious: Yes (Disabling, Other)
  Sender: FDA-Public Use
  Company Number: PHHY2010US72118

PATIENT
  Age: 76 Year
  Sex: Female
  Weight: 84 kg

DRUGS (7)
  1. TASIGNA [Suspect]
     Indication: SOFT TISSUE NEOPLASM
     Dosage: 400 MG, BID
     Route: 048
     Dates: start: 20091204
  2. TASIGNA [Suspect]
     Indication: OFF LABEL USE
     Dosage: 200 MG, BID
     Route: 048
     Dates: start: 20091204
  3. TASIGNA [Suspect]
     Dosage: 400 MG, BID
     Route: 048
  4. OMEPRAZOLE [Concomitant]
     Indication: GASTROOESOPHAGEAL REFLUX DISEASE
     Dosage: 20 MG DAILY
     Route: 048
  5. METOPROLOL [Concomitant]
     Indication: HYPERTENSION
     Dosage: 500 MG, BID
     Route: 048
  6. FUROSEMIDE [Concomitant]
     Indication: OEDEMA
     Dosage: 40 MG, BID
     Route: 048
     Dates: start: 20091104
  7. LEVOTHYROXINE [Concomitant]
     Indication: HYPOTHYROIDISM
     Dosage: 25 MCG DAILY
     Route: 048

REACTIONS (18)
  - Hypothyroidism [Unknown]
  - Thyroid disorder [Not Recovered/Not Resolved]
  - Weight increased [Unknown]
  - Oedema [Not Recovered/Not Resolved]
  - VIIth nerve paralysis [Unknown]
  - Heart rate irregular [Unknown]
  - Oedema peripheral [Unknown]
  - Tooth disorder [Unknown]
  - Feeling abnormal [Unknown]
  - Dysphagia [Unknown]
  - Pallor [Unknown]
  - Fatigue [Not Recovered/Not Resolved]
  - Asthenia [Not Recovered/Not Resolved]
  - Dyspnoea [Not Recovered/Not Resolved]
  - Abdominal pain upper [Not Recovered/Not Resolved]
  - Fluid retention [Not Recovered/Not Resolved]
  - Lip swelling [Unknown]
  - Alopecia [Unknown]
